FAERS Safety Report 7909898-3 (Version None)
Quarter: 2011Q4

REPORT INFORMATION
  Report Type: 
  Country: None (occurrence: None)
  Receive Date: 20111111
  Receipt Date: 20111025
  Transmission Date: 20120403
  Serious: Yes (Death, Life-Threatening, Hospitalization)
  Sender: FDA-Public Use
  Company Number: DE-ROCHE-1007298

PATIENT
  Age: 54 Year
  Sex: Male
  Weight: 81 kg

DRUGS (11)
  1. APSOMOL [Concomitant]
     Indication: ASTHMA
  2. PREDNISOLONE [Suspect]
     Indication: RHEUMATOID ARTHRITIS
     Dosage: 20-50 MG
     Route: 048
     Dates: start: 20110301, end: 20110801
  3. VIANI FORTE [Concomitant]
     Indication: PNEUMONIA
     Route: 048
  4. VIANI FORTE [Concomitant]
     Indication: ASTHMA
  5. LEFLUNOMIDE [Suspect]
     Indication: RHEUMATOID ARTHRITIS
     Dosage: 10-20 MG
     Route: 048
     Dates: start: 20100601, end: 20110701
  6. MABTHERA [Suspect]
     Route: 042
     Dates: start: 20101125, end: 20110531
  7. PREDNISOLONE [Suspect]
     Indication: LUNG DISORDER
  8. SPIRIVA [Concomitant]
     Indication: PNEUMONIA
     Route: 048
  9. MABTHERA [Suspect]
     Indication: RHEUMATOID ARTHRITIS
     Route: 042
     Dates: start: 20100601, end: 20100701
  10. SPIRIVA [Concomitant]
     Indication: ASTHMA
  11. APSOMOL [Concomitant]
     Indication: PNEUMONIA
     Route: 048

REACTIONS (4)
  - PNEUMONIA HERPES VIRAL [None]
  - PNEUMOCYSTIS JIROVECI PNEUMONIA [None]
  - RESPIRATORY FAILURE [None]
  - MULTI-ORGAN FAILURE [None]
